FAERS Safety Report 22139070 (Version 1)
Quarter: 2023Q1

REPORT INFORMATION
  Report Type: Report from Study
  Country: US (occurrence: US)
  Receive Date: 20230327
  Receipt Date: 20230327
  Transmission Date: 20230418
  Serious: Yes (Other)
  Sender: FDA-Public Use
  Company Number: US-ACADIA PHARMACEUTICALS INC.-ACA-2023-PIM-001076

PATIENT
  Sex: Female

DRUGS (3)
  1. NUPLAZID [Suspect]
     Active Substance: PIMAVANSERIN TARTRATE
     Indication: Hallucination
     Dosage: 34 MILLIGRAM, QD
     Route: 048
  2. NUPLAZID [Suspect]
     Active Substance: PIMAVANSERIN TARTRATE
     Indication: Delusion
  3. NUPLAZID [Suspect]
     Active Substance: PIMAVANSERIN TARTRATE
     Indication: Parkinson^s disease

REACTIONS (12)
  - Diabetes mellitus [Not Recovered/Not Resolved]
  - Cheilitis [Not Recovered/Not Resolved]
  - Stomatitis [Not Recovered/Not Resolved]
  - Salivary hypersecretion [Not Recovered/Not Resolved]
  - Visual impairment [Not Recovered/Not Resolved]
  - Posture abnormal [Not Recovered/Not Resolved]
  - Bone disorder [Not Recovered/Not Resolved]
  - Tremor [Not Recovered/Not Resolved]
  - Delusion [Not Recovered/Not Resolved]
  - Dementia [Not Recovered/Not Resolved]
  - Disturbance in attention [Not Recovered/Not Resolved]
  - Hallucinations, mixed [Not Recovered/Not Resolved]
